FAERS Safety Report 21762134 (Version 2)
Quarter: 2022Q4

REPORT INFORMATION
  Report Type: Spontaneous
  Country: DK (occurrence: DK)
  Receive Date: 20221221
  Receipt Date: 20221223
  Transmission Date: 20230113
  Serious: Yes (Other)
  Sender: FDA-Public Use
  Company Number: None

PATIENT
  Age: 53 Year
  Sex: Male
  Weight: 86 kg

DRUGS (7)
  1. METHOTREXATE [Interacting]
     Active Substance: METHOTREXATE
     Indication: Psoriatic arthropathy
     Dosage: 7.5 MG, QW
     Route: 048
     Dates: start: 20181218
  2. HYDROCORTISONE\MICONAZOLE NITRATE [Concomitant]
     Active Substance: HYDROCORTISONE\MICONAZOLE NITRATE
     Indication: Skin disorder
     Dosage: 2 DOSAGE FORM, QD
     Route: 003
     Dates: start: 20210407
  3. ACETAMINOPHEN [Concomitant]
     Active Substance: ACETAMINOPHEN
     Indication: Pain
     Dosage: 1000 MG, PRN (DOSAGE: MAX 3 TIMES DAILY
     Route: 048
     Dates: start: 20170511
  4. FEXOFENADINE [Concomitant]
     Active Substance: FEXOFENADINE HYDROCHLORIDE
     Indication: Seasonal allergy
     Dosage: 180 MG, QD
     Route: 048
     Dates: start: 20121211
  5. TRAMADOL [Concomitant]
     Active Substance: TRAMADOL
     Indication: Psoriatic arthropathy
     Dosage: 150 MG, QD
     Route: 048
     Dates: start: 20200207
  6. SERETIDE [Concomitant]
     Active Substance: FLUTICASONE PROPIONATE\SALMETEROL XINAFOATE
     Indication: Asthma
     Dosage: 2 DOSAGE FORM, QD (STRENGTH: 50+250 ?G/DOSE)
     Dates: start: 20180810
  7. FLUTICASONE PROPIONATE [Concomitant]
     Active Substance: FLUTICASONE PROPIONATE
     Indication: Seasonal allergy
     Dosage: 2 DOSAGE FORM, QD (STRENGTH: 50 ?G/DOSE)
     Route: 045
     Dates: start: 20190401

REACTIONS (4)
  - Psoriatic arthropathy [Recovering/Resolving]
  - Rash [Recovering/Resolving]
  - Fatigue [Recovering/Resolving]
  - Drug interaction [Unknown]

NARRATIVE: CASE EVENT DATE: 20210718
